FAERS Safety Report 4698972-3 (Version None)
Quarter: 2005Q2

REPORT INFORMATION
  Report Type: 
  Country: None (occurrence: None)
  Receive Date: 20050622
  Receipt Date: 20050622
  Transmission Date: 20051028
  Serious: Yes (Death, Hospitalization)
  Sender: FDA-Public Use
  Company Number: None

PATIENT
  Age: 72 Year
  Sex: Male
  Weight: 59.8748 kg

DRUGS (8)
  1. OXALIPLATIN ON DAY 1 EVERY 3 WEEKS [Suspect]
     Indication: PANCREATIC CARCINOMA
     Dosage: 100 MG/M2 120 MIN IV
     Route: 042
     Dates: start: 20050303, end: 20050525
  2. CAPECITABINE 2 DIVIDED DOSES FOR 14 DAYS [Suspect]
     Indication: PANCREATIC CARCINOMA
     Dosage: 1500 MG/M2 PO QD
     Route: 048
     Dates: start: 20050303, end: 20050608
  3. CREON [Concomitant]
  4. DILAUDID [Concomitant]
  5. DOLASETRON MESYLATE [Concomitant]
  6. LOVENOX [Concomitant]
  7. MEGACE [Concomitant]
  8. RESTORIL [Concomitant]

REACTIONS (5)
  - CEREBRAL ARTERY OCCLUSION [None]
  - CEREBRAL ISCHAEMIA [None]
  - COMPLEX PARTIAL SEIZURES [None]
  - EMBOLISM [None]
  - HYPERCOAGULATION [None]
